FAERS Safety Report 21847425 (Version 2)
Quarter: 2023Q1

REPORT INFORMATION
  Report Type: Spontaneous
  Country: US (occurrence: US)
  Receive Date: 20230111
  Receipt Date: 20230117
  Transmission Date: 20230418
  Serious: No
  Sender: FDA-Public Use
  Company Number: US-SA-SAC20230110000365

PATIENT
  Age: 61 Year
  Sex: Male

DRUGS (3)
  1. ALPROLIX [Suspect]
     Active Substance: EFTRENONACOG ALFA
     Dosage: 8400 IU, QW PRN
     Route: 042
  2. ALPROLIX [Suspect]
     Active Substance: EFTRENONACOG ALFA
     Dosage: UNK UNK, QD
     Route: 042
  3. ALPROLIX [Suspect]
     Active Substance: EFTRENONACOG ALFA
     Dosage: UNK UNK, QOD
     Route: 042

REACTIONS (2)
  - Joint swelling [Not Recovered/Not Resolved]
  - Joint warmth [Unknown]

NARRATIVE: CASE EVENT DATE: 20221223
